FAERS Safety Report 4663322-5 (Version None)
Quarter: 2005Q2

REPORT INFORMATION
  Report Type: 
  Country: None (occurrence: None)
  Receive Date: 20050517
  Receipt Date: 20050509
  Transmission Date: 20051028
  Serious: Yes (Hospitalization)
  Sender: FDA-Public Use
  Company Number: US-BRISTOL-MYERS SQUIBB COMPANY-12970182

PATIENT

DRUGS (1)
  1. TEQUIN [Suspect]

REACTIONS (1)
  - HYPERGLYCAEMIA [None]
